FAERS Safety Report 12622495 (Version 1)
Quarter: 2016Q3

REPORT INFORMATION
  Report Type: Spontaneous
  Country: CN (occurrence: CN)
  Receive Date: 20160804
  Receipt Date: 20160804
  Transmission Date: 20161109
  Serious: Yes (Other)
  Sender: FDA-Public Use
  Company Number: CN-BAYER-2016-150097

PATIENT
  Age: 69 Year
  Sex: Male

DRUGS (2)
  1. AVELOX [Suspect]
     Active Substance: MOXIFLOXACIN HYDROCHLORIDE
     Indication: LUNG INFECTION
     Dosage: 0.4 G, QD
     Route: 041
     Dates: start: 20160609, end: 20160610
  2. DOXOFYLLINE [Suspect]
     Active Substance: DOXOFYLLINE
     Indication: LUNG INFECTION
     Dosage: 0.1 G, BID
     Dates: start: 20160609, end: 20160610

REACTIONS (3)
  - Loss of consciousness [Recovering/Resolving]
  - Movement disorder [Recovering/Resolving]
  - Irritability [Recovering/Resolving]

NARRATIVE: CASE EVENT DATE: 20160610
